FAERS Safety Report 6038937-2 (Version None)
Quarter: 2009Q1

REPORT INFORMATION
  Report Type: 
  Country: None (occurrence: None)
  Receive Date: 20090115
  Receipt Date: 20090105
  Transmission Date: 20090719
  Serious: Yes (Death)
  Sender: FDA-Public Use
  Company Number: JP-WYE-H07601509

PATIENT
  Age: 90 Year
  Sex: Female

DRUGS (1)
  1. ZOSYN [Suspect]
     Indication: PYELONEPHRITIS
     Route: 041
     Dates: start: 20081022, end: 20081025

REACTIONS (2)
  - DISSEMINATED INTRAVASCULAR COAGULATION [None]
  - PLATELET COUNT DECREASED [None]
